FAERS Safety Report 6708488-8 (Version None)
Quarter: 2010Q2

REPORT INFORMATION
  Report Type: 
  Country: None (occurrence: None)
  Receive Date: 20100503
  Receipt Date: 20090609
  Transmission Date: 20101027
  Serious: No
  Sender: FDA-Public Use
  Company Number: US-ASTRAZENECA-2009UW14692

PATIENT
  Age: 30762 Day
  Sex: Female
  Weight: 74.8 kg

DRUGS (1)
  1. NEXIUM [Suspect]
     Route: 048

REACTIONS (2)
  - BRONCHITIS [None]
  - INFLUENZA [None]
